FAERS Safety Report 10167968 (Version 2)
Quarter: 2014Q2

REPORT INFORMATION
  Report Type: Spontaneous
  Country: US (occurrence: US)
  Receive Date: 20140512
  Receipt Date: 20140529
  Transmission Date: 20141212
  Serious: Yes (Hospitalization)
  Sender: FDA-Public Use
  Company Number: US-GLAXOSMITHKLINE-A1072851A

PATIENT
  Age: 55 Year
  Sex: Male

DRUGS (3)
  1. ADVAIR HFA [Suspect]
     Indication: PRODUCT USED FOR UNKNOWN INDICATION
     Route: 065
     Dates: start: 20120604
  2. VENTOLIN HFA [Concomitant]
     Dates: start: 20110118
  3. WELLBUTRIN SR [Concomitant]
     Dates: start: 20100913

REACTIONS (1)
  - Thrombosis [Unknown]
